FAERS Safety Report 8493607-6 (Version None)
Quarter: 2012Q3

REPORT INFORMATION
  Report Type: 
  Country: None (occurrence: None)
  Receive Date: 20120706
  Receipt Date: 20120625
  Transmission Date: 20120928
  Serious: Yes (Other)
  Sender: FDA-Public Use
  Company Number: US-ENDO PHARMACEUTICALS INC.-PERC20120112

PATIENT
  Sex: Male

DRUGS (2)
  1. PERCOCET [Suspect]
     Dosage: 10MG/325MG
     Route: 048
     Dates: start: 20090101, end: 20120619
  2. PERCOCET [Suspect]
     Indication: NECK PAIN
     Dosage: 10MG/325MG
     Route: 048
     Dates: start: 20120620

REACTIONS (4)
  - FEELING JITTERY [None]
  - INTENTIONAL DRUG MISUSE [None]
  - ABDOMINAL DISCOMFORT [None]
  - DRUG INEFFECTIVE [None]
